FAERS Safety Report 17469758 (Version 1)
Quarter: 2020Q1

REPORT INFORMATION
  Report Type: Spontaneous
  Country: US (occurrence: US)
  Receive Date: 20200227
  Receipt Date: 20200227
  Transmission Date: 20200409
  Serious: No
  Sender: FDA-Public Use
  Company Number: US-UPSHER-SMITH LABORATORIES, LLC-2019USL00617

PATIENT
  Age: 48 Year
  Sex: Female
  Weight: 86.17 kg

DRUGS (3)
  1. UNSPECIFIED MIGRAINE MEDICATIONS [Concomitant]
  2. ZEMBRACE SYMTOUCH [Suspect]
     Active Substance: SUMATRIPTAN SUCCINATE
     Indication: MIGRAINE
     Dosage: 3 MG, AS NEEDED
     Dates: start: 201907
  3. ZEMBRACE SYMTOUCH [Suspect]
     Active Substance: SUMATRIPTAN SUCCINATE
     Dosage: 3 MG, AS NEEDED
     Dates: start: 201907

REACTIONS (2)
  - Injection site pain [Unknown]
  - Injection site bruising [Not Recovered/Not Resolved]

NARRATIVE: CASE EVENT DATE: 201907
